FAERS Safety Report 5255264-1 (Version None)
Quarter: 2007Q1

REPORT INFORMATION
  Report Type: 
  Country: None (occurrence: None)
  Receive Date: 20070228
  Receipt Date: 20061107
  Transmission Date: 20070707
  Serious: Yes (Life-Threatening, Hospitalization)
  Sender: FDA-Public Use
  Company Number: DSA_29385_2007

PATIENT
  Age: 79 Year
  Sex: Male

DRUGS (2)
  1. DILTIAZEM [Suspect]
     Dosage: 180 MG BID PO
     Route: 048
     Dates: end: 20060112
  2. ACETYLSALICYLIC ACID SRT [Suspect]
     Dosage: 300 MG QD PO
     Route: 048
     Dates: end: 20060112

REACTIONS (2)
  - HAEMATEMESIS [None]
  - MELAENA [None]
